FAERS Safety Report 9570575 (Version 6)
Quarter: 2014Q2

REPORT INFORMATION
  Report Type: Spontaneous
  Country: US (occurrence: US)
  Receive Date: 20131001
  Receipt Date: 20140626
  Transmission Date: 20141212
  Serious: Yes (Hospitalization, Other)
  Sender: FDA-Public Use
  Company Number: US-ROCHE-1281375

PATIENT
  Age: 70 Year
  Sex: Female

DRUGS (2)
  1. ZELBORAF [Suspect]
     Indication: MALIGNANT MELANOMA
     Dosage: 4 CAPSULE TWICE A DAY.
     Route: 048
     Dates: start: 20130624
  2. ZELBORAF [Suspect]
     Indication: NEOPLASM MALIGNANT
     Dosage: 3 CASULE TWICE A DAY
     Route: 048
     Dates: start: 20130724, end: 201406

REACTIONS (7)
  - Clostridium difficile infection [Recovered/Resolved]
  - Skin papilloma [Recovering/Resolving]
  - Dyspnoea [Not Recovered/Not Resolved]
  - Chest discomfort [Not Recovered/Not Resolved]
  - Neuropathy peripheral [Not Recovered/Not Resolved]
  - Rash [Not Recovered/Not Resolved]
  - Disease progression [Unknown]
